FAERS Safety Report 9318373 (Version 1)
Quarter: 2013Q2

REPORT INFORMATION
  Report Type: Spontaneous
  Country: US (occurrence: US)
  Receive Date: 20130530
  Receipt Date: 20130530
  Transmission Date: 20140414
  Serious: No
  Sender: FDA-Public Use
  Company Number: US-GLAXOSMITHKLINE-A1012488A

PATIENT
  Age: 59 Year
  Sex: Female

DRUGS (10)
  1. VENTOLIN [Suspect]
     Indication: ASTHMA
     Route: 055
  2. FLOVENT [Concomitant]
  3. CALCIUM [Concomitant]
  4. MULTI VITAMIN [Concomitant]
  5. B12 [Concomitant]
  6. METOPROLOL [Concomitant]
  7. AMLODIPINE [Concomitant]
  8. CYCLOBENZAPRINE [Concomitant]
  9. CITALOPRAM [Concomitant]
  10. OXYCODONE [Concomitant]

REACTIONS (3)
  - Cough [Recovering/Resolving]
  - Dyspnoea [Unknown]
  - Product quality issue [Unknown]
